FAERS Safety Report 23173738 (Version 1)
Quarter: 2023Q4

REPORT INFORMATION
  Report Type: Spontaneous
  Country: DE (occurrence: DE)
  Receive Date: 20231111
  Receipt Date: 20231111
  Transmission Date: 20240109
  Serious: Yes (Other)
  Sender: FDA-Public Use
  Company Number: None

PATIENT
  Age: 60 Year
  Sex: Female
  Weight: 68 kg

DRUGS (1)
  1. LETROZOLE [Suspect]
     Active Substance: LETROZOLE
     Indication: Breast cancer
     Dosage: 1XTGL
     Route: 048
     Dates: start: 20230101, end: 20230601

REACTIONS (2)
  - Hepatic cirrhosis [Recovered/Resolved with Sequelae]
  - Varices oesophageal [Recovered/Resolved with Sequelae]

NARRATIVE: CASE EVENT DATE: 20230316
